FAERS Safety Report 4905491-5 (Version None)
Quarter: 2006Q1

REPORT INFORMATION
  Report Type: 
  Country: None (occurrence: None)
  Receive Date: 20060208
  Receipt Date: 20060130
  Transmission Date: 20060701
  Serious: Yes (Death, Hospitalization)
  Sender: FDA-Public Use
  Company Number: DE-BRISTOL-MYERS SQUIBB COMPANY-13264155

PATIENT
  Age: 77 Year
  Sex: Male

DRUGS (2)
  1. CYCLOPHOSPHAMIDE [Suspect]
     Indication: GLOMERULONEPHRITIS
  2. PREDNISOLONE [Suspect]
     Indication: GLOMERULONEPHRITIS

REACTIONS (2)
  - RESPIRATORY DISTRESS [None]
  - STRONGYLOIDIASIS [None]
